FAERS Safety Report 26109220 (Version 1)
Quarter: 2025Q4

REPORT INFORMATION
  Report Type: Spontaneous
  Country: US (occurrence: None)
  Receive Date: 20251126
  Receipt Date: 20251126
  Transmission Date: 20260118
  Serious: Yes (Hospitalization)
  Sender: FDA-CTU
  Company Number: None

PATIENT
  Sex: Female

DRUGS (4)
  1. OPSUMIT [Suspect]
     Active Substance: MACITENTAN
     Indication: Pulmonary arterial hypertension
     Dosage: FREQUENCY : DAILY;?
     Route: 048
     Dates: start: 20240726
  2. TRIAMCINOLONE ACET CRM [Concomitant]
  3. LIDOCAINE/PRILOCAINE CRM [Concomitant]
  4. REMODULIN [Suspect]
     Active Substance: TREPROSTINIL

REACTIONS (3)
  - Injection site pain [None]
  - Injection site pain [None]
  - Injection site erythema [None]
